FAERS Safety Report 10776613 (Version 7)
Quarter: 2021Q3

REPORT INFORMATION
  Report Type: Report from Study
  Country: US (occurrence: US)
  Receive Date: 20150209
  Receipt Date: 20210720
  Transmission Date: 20211014
  Serious: Yes (Life-Threatening, Hospitalization, Other)
  Sender: FDA-Public Use
  Company Number: US-SA-2015SA013612

PATIENT
  Age: 30 Year
  Sex: Female
  Weight: 81.19 kg

DRUGS (5)
  1. TERIFLUNOMIDE. [Suspect]
     Active Substance: TERIFLUNOMIDE
     Dosage: 14 MG, QD
     Route: 048
  2. COPAXONE [Concomitant]
     Active Substance: GLATIRAMER ACETATE
     Indication: MULTIPLE SCLEROSIS
     Dosage: UNK
     Dates: start: 20100101, end: 20141021
  3. LISINOPRIL. [Concomitant]
     Active Substance: LISINOPRIL
     Dosage: UNK
  4. COPAXONE [Concomitant]
     Active Substance: GLATIRAMER ACETATE
     Dosage: UNK
     Dates: start: 20141028, end: 20141222
  5. TERIFLUNOMIDE. [Suspect]
     Active Substance: TERIFLUNOMIDE
     Indication: RELAPSING-REMITTING MULTIPLE SCLEROSIS
     Dosage: 14 MG, QD
     Route: 048
     Dates: start: 201412, end: 201502

REACTIONS (9)
  - Multiple sclerosis relapse [Unknown]
  - JC polyomavirus test positive [Unknown]
  - Hypertension [Unknown]
  - Panic attack [Unknown]
  - Peripheral coldness [Unknown]
  - Anxiety [Unknown]
  - Blood iron decreased [Not Recovered/Not Resolved]
  - Tachycardia [Recovering/Resolving]
  - Neoplasm malignant [Unknown]

NARRATIVE: CASE EVENT DATE: 2015
